FAERS Safety Report 23804183 (Version 2)
Quarter: 2025Q4

REPORT INFORMATION
  Report Type: Spontaneous
  Country: US (occurrence: US)
  Receive Date: 20240501
  Receipt Date: 20251204
  Transmission Date: 20260117
  Serious: Yes (Hospitalization, Other)
  Sender: GE HEALTHCARE
  Company Number: US-GE HEALTHCARE-2024CSU004273

PATIENT
  Age: 73 Year
  Sex: Male
  Weight: 80.2 kg

DRUGS (2)
  1. OMNIPAQUE [Suspect]
     Active Substance: IOHEXOL
     Indication: Catheterisation cardiac
     Dosage: 35 ML, TOTAL
     Route: 013
     Dates: start: 20240417
  2. OMNIPAQUE [Suspect]
     Active Substance: IOHEXOL
     Indication: Angiocardiogram

REACTIONS (1)
  - Contrast encephalopathy [Recovered/Resolved]

NARRATIVE: CASE EVENT DATE: 20240417
